FAERS Safety Report 21949518 (Version 5)
Quarter: 2023Q4

REPORT INFORMATION
  Report Type: Spontaneous
  Country: US (occurrence: US)
  Receive Date: 20230203
  Receipt Date: 20231229
  Transmission Date: 20240109
  Serious: No
  Sender: FDA-Public Use
  Company Number: US-BRISTOL-MYERS SQUIBB COMPANY-2023-015692

PATIENT
  Age: 75 Year
  Sex: Female

DRUGS (2)
  1. POMALYST [Suspect]
     Active Substance: POMALIDOMIDE
     Indication: Plasma cell myeloma
     Dosage: FREQUENCY: OTHER,QD FOR 7 DAYS ON AND 21 DAYS OFF
     Route: 048
     Dates: start: 202009
  2. POMALYST [Suspect]
     Active Substance: POMALIDOMIDE
     Indication: Plasmacytoma
     Route: 048

REACTIONS (6)
  - Diarrhoea [Recovering/Resolving]
  - Vomiting [Recovering/Resolving]
  - Sinusitis [Recovering/Resolving]
  - Dyspnoea [Unknown]
  - Cystitis [Unknown]
  - Off label use [Unknown]

NARRATIVE: CASE EVENT DATE: 20230201
